FAERS Safety Report 4800735-2 (Version None)
Quarter: 2005Q4

REPORT INFORMATION
  Report Type: 
  Country: None (occurrence: None)
  Receive Date: 20051013
  Receipt Date: 20050927
  Transmission Date: 20060501
  Serious: Yes (Death, Hospitalization)
  Sender: FDA-Public Use
  Company Number: 217863

PATIENT
  Age: 53 Year
  Sex: Male
  Weight: 70 kg

DRUGS (3)
  1. AVASTIN [Suspect]
     Indication: COLORECTAL CANCER
     Dosage: 350 MG, Q2W, INTRAVENOUS
     Route: 042
     Dates: start: 20050401
  2. OXALIPLATIN (OXALIPLATIN [Suspect]
     Indication: COLORECTAL CANCER
     Dosage: 150 MG, Q2W, INTRAVENOUS
     Route: 042
     Dates: start: 20050330
  3. FLUOROURACIL [Suspect]
     Indication: COLORECTAL CANCER
     Dosage: 1770 MG, Q2W, INTRAVENOUS
     Route: 042
     Dates: start: 20050330

REACTIONS (8)
  - ACUTE RESPIRATORY DISTRESS SYNDROME [None]
  - ALPHA HAEMOLYTIC STREPTOCOCCAL INFECTION [None]
  - C-REACTIVE PROTEIN INCREASED [None]
  - LUNG DISORDER [None]
  - LUNG INFILTRATION [None]
  - PNEUMOTHORAX [None]
  - RENAL FAILURE [None]
  - SPUTUM CULTURE POSITIVE [None]
